FAERS Safety Report 14242511 (Version 1)
Quarter: 2017Q4

REPORT INFORMATION
  Report Type: Spontaneous
  Country: US (occurrence: None)
  Receive Date: 20171130
  Receipt Date: 20171130
  Transmission Date: 20180321
  Serious: No
  Sender: FDA-Public Use
  Company Number: None

PATIENT
  Sex: Female

DRUGS (2)
  1. CIMZIA [Suspect]
     Active Substance: CERTOLIZUMAB PEGOL
     Indication: RHEUMATOID ARTHRITIS
     Dosage: FREQUENCY Q 4W
     Route: 058
     Dates: start: 201602
  2. CIMZIA [Suspect]
     Active Substance: CERTOLIZUMAB PEGOL
     Indication: JUVENILE IDIOPATHIC ARTHRITIS
     Dosage: FREQUENCY Q 4W
     Route: 058
     Dates: start: 201602

REACTIONS (1)
  - Gastrointestinal disorder [None]
